FAERS Safety Report 5227335-7 (Version None)
Quarter: 2007Q1

REPORT INFORMATION
  Report Type: 
  Country: None (occurrence: None)
  Receive Date: 20070130
  Receipt Date: 20070124
  Transmission Date: 20070707
  Serious: Yes (Death)
  Sender: FDA-Public Use
  Company Number: 152192USA

PATIENT
  Age: 77 Year
  Sex: Male

DRUGS (2)
  1. PROMPT PHENYTOIN SODIUM [Suspect]
     Indication: CONVULSION
  2. CASPOFUNGIN [Suspect]
     Indication: CANDIDIASIS
     Dosage: 70 MILLIGRAM/DAY FOR 5 DAYS, 50 MILLIGRAM/DAY FOR 2 DAYS (1 IN 1 D), INTRAVENOUS
     Route: 042

REACTIONS (3)
  - MULTI-ORGAN FAILURE [None]
  - RESPIRATORY DISTRESS [None]
  - SYSTEMIC CANDIDA [None]
